FAERS Safety Report 8029197-1 (Version None)
Quarter: 2012Q1

REPORT INFORMATION
  Report Type: 
  Country: None (occurrence: None)
  Receive Date: 20120106
  Receipt Date: 20120104
  Transmission Date: 20120608
  Serious: Yes (Other)
  Sender: FDA-Public Use
  Company Number: PHEH2005US10683

PATIENT

DRUGS (14)
  1. FOLIC ACID [Concomitant]
  2. AREDIA [Suspect]
     Dosage: Q3MOS
     Route: 042
     Dates: start: 20060101
  3. DEXAMETHASONE [Concomitant]
     Indication: MULTIPLE MYELOMA
     Dosage: 20 MG EVERY WEEK
     Dates: start: 20031101, end: 20040826
  4. ASPIRIN [Concomitant]
  5. ZOLOFT [Concomitant]
     Indication: DEPRESSION
     Dates: start: 20060501
  6. PERCOCET [Suspect]
  7. CLINDAMYCIN [Concomitant]
     Indication: OSTEOMYELITIS
     Dosage: 300 MG, QID
     Dates: start: 20041102
  8. DARVOCET-N 50 [Concomitant]
  9. CHEMOTHERAPEUTICS [Concomitant]
     Indication: MULTIPLE MYELOMA
  10. ZOMETA [Suspect]
     Indication: BONE DISORDER
     Dosage: UNK, UNK
     Dates: start: 20031101, end: 20040723
  11. STEROIDS NOS [Concomitant]
  12. CLINDAMYCIN [Concomitant]
     Dosage: 300 MG, TID
     Dates: start: 20041101
  13. ALLOPURINOL [Concomitant]
     Dates: start: 20031107
  14. THALIDOMIDE [Concomitant]
     Indication: MULTIPLE MYELOMA
     Dosage: UNK, UNK
     Dates: start: 20031101, end: 20040826

REACTIONS (47)
  - OSTEOMYELITIS [None]
  - COGNITIVE DISORDER [None]
  - AMNESIA [None]
  - VISION BLURRED [None]
  - FISTULA [None]
  - BONE LESION [None]
  - PARAESTHESIA [None]
  - HYPERAESTHESIA [None]
  - EXTERNAL EAR DISORDER [None]
  - CAROTID ARTERY STENOSIS [None]
  - HYPONATRAEMIA [None]
  - OSTEONECROSIS OF JAW [None]
  - PRIMARY SEQUESTRUM [None]
  - BACTERIAL INFECTION [None]
  - OSTEOSCLEROSIS [None]
  - COMPRESSION FRACTURE [None]
  - ENCEPHALOPATHY [None]
  - DIARRHOEA [None]
  - BONE MARROW DISORDER [None]
  - ABSCESS [None]
  - OEDEMA [None]
  - CEREBROVASCULAR ACCIDENT [None]
  - NEOPLASM MALIGNANT [None]
  - HAEMATOCRIT DECREASED [None]
  - CONSTIPATION [None]
  - OEDEMA PERIPHERAL [None]
  - ABDOMINAL DISCOMFORT [None]
  - GINGIVAL HYPERTROPHY [None]
  - PURULENT DISCHARGE [None]
  - SOFT TISSUE INFLAMMATION [None]
  - VASCULITIS [None]
  - BLOOD PRESSURE INCREASED [None]
  - BLOOD CREATININE INCREASED [None]
  - DYSAESTHESIA [None]
  - PAIN [None]
  - GINGIVAL EROSION [None]
  - PITUITARY ENLARGEMENT [None]
  - DENTURE WEARER [None]
  - SKIN ULCER [None]
  - BACK PAIN [None]
  - OSTEOPOROSIS [None]
  - NERVOUS SYSTEM DISORDER [None]
  - MEMORY IMPAIRMENT [None]
  - BONE DISORDER [None]
  - MASTOIDITIS [None]
  - DEPRESSION [None]
  - TOOTH LOSS [None]
